FAERS Safety Report 5290272-6 (Version None)
Quarter: 2007Q2

REPORT INFORMATION
  Report Type: 
  Country: None (occurrence: None)
  Receive Date: 20070406
  Receipt Date: 20070328
  Transmission Date: 20071010
  Serious: Yes (Other)
  Sender: FDA-Public Use
  Company Number: ES-MERCK-0702ESP00041

PATIENT
  Age: 41 Year
  Sex: Female
  Weight: 57 kg

DRUGS (10)
  1. COSOPT [Suspect]
     Indication: INTRAOCULAR PRESSURE INCREASED
     Route: 047
     Dates: start: 20030604
  2. LEVOTHYROXINE SODIUM [Concomitant]
     Indication: HYPOTHYROIDISM
     Route: 048
     Dates: start: 19970101
  3. FERROUS SULFATE [Concomitant]
     Indication: ANAEMIA
     Route: 048
     Dates: start: 20061219
  4. LATANOPROST [Concomitant]
     Route: 047
     Dates: start: 20070102, end: 20070205
  5. TRAVOPROST [Concomitant]
     Route: 047
     Dates: start: 20050101, end: 20061212
  6. TIMOLOL [Concomitant]
     Route: 047
     Dates: start: 20070205, end: 20070205
  7. TRAVOPROST [Concomitant]
     Route: 047
     Dates: start: 20070205, end: 20070205
  8. PROGESTERONE [Suspect]
     Route: 067
     Dates: start: 20070203, end: 20070226
  9. FOLIC ACID AND IRON (UNSPECIFIED) [Concomitant]
     Route: 065
     Dates: start: 20070203, end: 20070226
  10. VITAMINS (UNSPECIFIED) [Concomitant]
     Route: 065
     Dates: start: 20070203, end: 20070226

REACTIONS (3)
  - DRUG EXPOSURE DURING PREGNANCY [None]
  - ECTOPIC PREGNANCY [None]
  - HAEMORRHAGE [None]
